FAERS Safety Report 9015327 (Version 1)
Quarter: 2013Q1

REPORT INFORMATION
  Report Type: Spontaneous
  Country: US (occurrence: None)
  Receive Date: 20130109
  Receipt Date: 20130109
  Transmission Date: 20140127
  Serious: Yes (Other)
  Sender: FDA-Public Use
  Company Number: None

PATIENT
  Sex: Male
  Weight: 87.09 kg

DRUGS (1)
  1. PROAIR HFA [Suspect]
     Dosage: 2 PUFFS / MIN. APART 4X DAY MOUTH
     Route: 048

REACTIONS (3)
  - Dyspnoea [None]
  - Dizziness [None]
  - Nausea [None]
